FAERS Safety Report 4348678-5 (Version None)
Quarter: 2004Q2

REPORT INFORMATION
  Report Type: 
  Country: None (occurrence: None)
  Receive Date: 20040423
  Receipt Date: 20040412
  Transmission Date: 20050107
  Serious: Yes (Hospitalization, Other)
  Sender: FDA-Public Use
  Company Number: 04-126-0768

PATIENT
  Age: 69 Year
  Sex: Male

DRUGS (3)
  1. DAUNORUBICIN HCL [Suspect]
     Indication: ACUTE LEUKAEMIA
     Dosage: 70 MG IV QD
     Route: 042
     Dates: start: 20040318, end: 20010320
  2. CYTARABINE [Suspect]
     Indication: ACUTE LEUKAEMIA
     Dosage: 1200 MG IV QD
     Route: 042
     Dates: start: 20040317, end: 20040324
  3. FLUCONAZOLE ORAL SUSPENSION [Suspect]
     Indication: INFECTION PROPHYLAXIS
     Dosage: 400 MG QD ORAL
     Route: 048
     Dates: start: 20040322

REACTIONS (2)
  - NEUTROPENIA [None]
  - PYREXIA [None]
